FAERS Safety Report 6814485-4 (Version None)
Quarter: 2010Q3

REPORT INFORMATION
  Report Type: 
  Country: None (occurrence: None)
  Receive Date: 20100702
  Receipt Date: 20100628
  Transmission Date: 20110219
  Serious: Yes (Life-Threatening, Hospitalization)
  Sender: FDA-Public Use
  Company Number: PHHY2010FR20246

PATIENT
  Sex: Female

DRUGS (8)
  1. EXJADE [Suspect]
     Dosage: 2 DF, QD
     Route: 048
     Dates: start: 20100316, end: 20100325
  2. NEORECORMON [Suspect]
  3. BETAHISTINE [Suspect]
     Dosage: 8 MG, QD
     Route: 048
     Dates: end: 20100327
  4. EFFERALGAN [Suspect]
     Dosage: 1 G, PRN
     Route: 048
     Dates: end: 20100327
  5. AERIUS [Suspect]
     Dosage: 5 MG, QD
     Route: 048
     Dates: end: 20100327
  6. FLUIDABAK COLLYRE [Suspect]
     Dosage: 1.5 %, UNK
     Route: 047
     Dates: start: 20091218, end: 20100327
  7. CROMABAK COLLYRE [Suspect]
     Dosage: UNK
     Route: 047
     Dates: start: 20091218, end: 20100327
  8. VITAMIN K TAB [Concomitant]

REACTIONS (49)
  - ABDOMINAL PAIN [None]
  - ALANINE AMINOTRANSFERASE INCREASED [None]
  - ANAEMIA [None]
  - ANURIA [None]
  - ASPARTATE AMINOTRANSFERASE INCREASED [None]
  - BIOPSY SKIN [None]
  - BLOOD CREATINE PHOSPHOKINASE INCREASED [None]
  - BLOOD CREATININE INCREASED [None]
  - BRADYCARDIA [None]
  - CARDIAC ARREST [None]
  - CELL DEATH [None]
  - CEREBRAL ISCHAEMIA [None]
  - COGNITIVE DISORDER [None]
  - CONFUSIONAL STATE [None]
  - CONTINUOUS HAEMODIAFILTRATION [None]
  - CYANOSIS [None]
  - DIARRHOEA [None]
  - DISORIENTATION [None]
  - DISSEMINATED INTRAVASCULAR COAGULATION [None]
  - DRUG RASH WITH EOSINOPHILIA AND SYSTEMIC SYMPTOMS [None]
  - DRY MOUTH [None]
  - EYELID OEDEMA [None]
  - FACE OEDEMA [None]
  - GASTROINTESTINAL DISORDER [None]
  - HAEMODYNAMIC INSTABILITY [None]
  - HEPATOCELLULAR INJURY [None]
  - HYPERKINESIA [None]
  - HYPERVENTILATION [None]
  - HYPOTENSION [None]
  - HYPOVOLAEMIA [None]
  - HYPOXIA [None]
  - LUNG DISORDER [None]
  - METABOLIC ACIDOSIS [None]
  - MULTI-ORGAN FAILURE [None]
  - NECROSIS [None]
  - NEUROLOGICAL DECOMPENSATION [None]
  - PURPURA [None]
  - PYREXIA [None]
  - RASH MACULO-PAPULAR [None]
  - RENAL IMPAIRMENT [None]
  - RESPIRATORY FAILURE [None]
  - RHABDOMYOLYSIS [None]
  - SEPTIC SHOCK [None]
  - SHOCK [None]
  - SKIN LESION [None]
  - THROMBOSIS [None]
  - TONGUE OEDEMA [None]
  - TOXIC SKIN ERUPTION [None]
  - ULCER HAEMORRHAGE [None]
